FAERS Safety Report 7552895-0 (Version None)
Quarter: 2011Q2

REPORT INFORMATION
  Report Type: 
  Country: None (occurrence: None)
  Receive Date: 20110616
  Receipt Date: 20100720
  Transmission Date: 20111010
  Serious: No
  Sender: FDA-Public Use
  Company Number: US-ASTRAZENECA-2010SE33838

PATIENT
  Age: 60 Year
  Sex: Female
  Weight: 75.7 kg

DRUGS (4)
  1. ZOMETA [Concomitant]
  2. FASLODEX [Suspect]
     Route: 030
     Dates: start: 20100301, end: 20100601
  3. FASLODEX [Suspect]
     Indication: BREAST CANCER METASTATIC
     Route: 030
     Dates: start: 20080101
  4. FASLODEX [Suspect]
     Route: 030
     Dates: start: 20100720

REACTIONS (10)
  - BONE PAIN [None]
  - INJECTION SITE PAIN [None]
  - PALPITATIONS [None]
  - VISION BLURRED [None]
  - DIZZINESS [None]
  - NEUROPATHY PERIPHERAL [None]
  - DIARRHOEA [None]
  - DYSPNOEA [None]
  - HEADACHE [None]
  - HOT FLUSH [None]
